FAERS Safety Report 5730404-6 (Version None)
Quarter: 2008Q2

REPORT INFORMATION
  Report Type: 
  Country: None (occurrence: None)
  Receive Date: 20080502
  Receipt Date: 20080418
  Transmission Date: 20081010
  Serious: Yes (Life-Threatening, Other)
  Sender: FDA-Public Use
  Company Number: 2008S1006897

PATIENT
  Age: 15 Year
  Sex: Female

DRUGS (2)
  1. FLECAINIDE ACETATE [Suspect]
     Indication: INTENTIONAL OVERDOSE
     Dosage: 4000 MG  X1  ORAL
     Route: 048
  2. QUINAPRIL HCL [Suspect]
     Indication: INTENTIONAL OVERDOSE
     Dosage: 560 MG; X1;  ORAL
     Route: 048

REACTIONS (8)
  - BUNDLE BRANCH BLOCK RIGHT [None]
  - ELECTROCARDIOGRAM PR PROLONGATION [None]
  - ELECTROCARDIOGRAM QRS COMPLEX PROLONGED [None]
  - ELECTROCARDIOGRAM QT PROLONGED [None]
  - HYPOTENSION [None]
  - POISONING DELIBERATE [None]
  - SOMNOLENCE [None]
  - TACHYCARDIA [None]
